FAERS Safety Report 9244072 (Version 1)
Quarter: 2013Q1

REPORT INFORMATION
  Report Type: Spontaneous
  Country: US (occurrence: None)
  Receive Date: 20121123
  Receipt Date: 20121123
  Transmission Date: 20140127
  Serious: No
  Sender: FDA-Public Use
  Company Number: 362641

PATIENT
  Age: 52 Year
  Sex: Male

DRUGS (3)
  1. VICTOZA [Suspect]
     Indication: TYPE 2 DIABETES MELLITUS
     Route: 058
     Dates: start: 20121007, end: 20121014
  2. METFORMIN (METFORMIN) [Concomitant]
  3. SIMVASTATIN (SIMVASTATIN) [Concomitant]

REACTIONS (2)
  - Pancreatitis [None]
  - Blood glucose increased [None]
